FAERS Safety Report 8062366 (Version 3)
Quarter: 2013Q1

REPORT INFORMATION
  Report Type: Report from Study
  Country: GB (occurrence: GB)
  Receive Date: 20110801
  Receipt Date: 20130215
  Transmission Date: 20140127
  Serious: Yes (Death, Hospitalization)
  Sender: FDA-Public Use
  Company Number: GB-JNJFOC-20110709693

PATIENT
  Age: 72 Year
  Sex: Male
  Weight: 72.6 kg

DRUGS (18)
  1. ABIRATERONE ACETATE [Suspect]
     Route: 048
  2. ABIRATERONE ACETATE [Suspect]
     Indication: PROSTATE CANCER METASTATIC
     Route: 048
     Dates: start: 20110714, end: 20110720
  3. ASPIRIN [Concomitant]
     Indication: ATRIAL FIBRILLATION
     Route: 048
     Dates: start: 20110713
  4. OMEPRAZOLE [Concomitant]
     Indication: DYSPEPSIA
     Route: 048
     Dates: start: 201103
  5. PARACETAMOL [Concomitant]
     Indication: PAIN
     Route: 048
  6. DIGOXIN [Concomitant]
     Indication: ATRIAL FIBRILLATION
     Route: 048
  7. TINZAPARIN [Concomitant]
     Indication: ATRIAL FIBRILLATION
     Route: 058
     Dates: start: 20110208, end: 20110712
  8. CLEXANE [Concomitant]
     Route: 058
  9. NYSTATIN [Concomitant]
     Route: 065
  10. LACTULOSE [Concomitant]
     Route: 065
  11. SENNA [Concomitant]
     Route: 065
  12. ZOPICLONE [Concomitant]
     Route: 065
  13. CODEINE PHOSPHATE [Concomitant]
     Route: 065
  14. SANDO K [Concomitant]
     Route: 065
     Dates: start: 20110725, end: 20110730
  15. PREDNISOLONE [Concomitant]
     Indication: DECREASED APPETITE
     Route: 048
     Dates: start: 20110628, end: 20110726
  16. PREDNISOLONE [Concomitant]
     Indication: DECREASED APPETITE
     Route: 048
     Dates: start: 20110726
  17. PREDNISOLONE [Concomitant]
     Indication: PROSTATE CANCER METASTATIC
     Route: 048
     Dates: start: 20110628, end: 20110726
  18. PREDNISOLONE [Concomitant]
     Indication: PROSTATE CANCER METASTATIC
     Route: 048
     Dates: start: 20110726

REACTIONS (3)
  - Muscular weakness [Not Recovered/Not Resolved]
  - Abasia [Not Recovered/Not Resolved]
  - Prostate cancer metastatic [Fatal]
